FAERS Safety Report 14393268 (Version 2)
Quarter: 2018Q1

REPORT INFORMATION
  Report Type: Spontaneous
  Country: US (occurrence: US)
  Receive Date: 20180116
  Receipt Date: 20180221
  Transmission Date: 20180509
  Serious: Yes (Other)
  Sender: FDA-Public Use
  Company Number: PHEH2018US000937

PATIENT
  Sex: Female

DRUGS (1)
  1. BETAMETHASONE VALERATE. [Suspect]
     Active Substance: BETAMETHASONE VALERATE
     Indication: PRODUCT USED FOR UNKNOWN INDICATION
     Dosage: 1 DF, BID (SCALP)
     Route: 061

REACTIONS (3)
  - Eye irritation [Unknown]
  - Product colour issue [Unknown]
  - Accidental exposure to product [Unknown]
